FAERS Safety Report 14981188 (Version 1)
Quarter: 2018Q2

REPORT INFORMATION
  Report Type: Spontaneous
  Country: US (occurrence: US)
  Receive Date: 20180606
  Receipt Date: 20180606
  Transmission Date: 20180711
  Serious: Yes (Other)
  Sender: FDA-Public Use
  Company Number: US-BAUSCH-BL-2018-016020

PATIENT
  Age: 73 Year
  Sex: Female

DRUGS (1)
  1. VYZULTA [Suspect]
     Active Substance: LATANOPROSTENE BUNOD
     Indication: INTRAOCULAR PRESSURE INCREASED
     Dosage: 1 DROP IN THE AFFECTED EYE
     Route: 047
     Dates: start: 201805

REACTIONS (1)
  - Corneal bleeding [Unknown]

NARRATIVE: CASE EVENT DATE: 201805
